FAERS Safety Report 22712855 (Version 4)
Quarter: 2024Q3

REPORT INFORMATION
  Report Type: Spontaneous
  Country: US (occurrence: US)
  Receive Date: 20230717
  Receipt Date: 20240708
  Transmission Date: 20241017
  Serious: Yes (Other)
  Sender: PFIZER
  Company Number: US-PFIZER INC-PV202300117095

PATIENT
  Age: 85 Year
  Sex: Female

DRUGS (2)
  1. IBRANCE [Suspect]
     Active Substance: PALBOCICLIB
     Indication: Breast cancer female
     Dosage: 100 MG, CYCLIC 1 TABLET ORAL DAILY FOR 21 DAYS THEN 7 DAYS OFF (DOSE REDUCTION)
     Route: 048
     Dates: start: 202207
  2. IBRANCE [Suspect]
     Active Substance: PALBOCICLIB
     Dosage: 75 MG, CYCLIC 1 ONCE DAILY FOR 21 DAYS THEN 7 DAYS OFF, THEN REPEAT CYCLE
     Route: 048

REACTIONS (2)
  - Neutropenia [Unknown]
  - Senile osteoporosis [Unknown]

NARRATIVE: CASE EVENT DATE: 20221129
